FAERS Safety Report 5408710-4 (Version None)
Quarter: 2007Q3

REPORT INFORMATION
  Report Type: 
  Country: None (occurrence: None)
  Receive Date: 20070808
  Receipt Date: 20070803
  Transmission Date: 20080115
  Serious: Yes (Other)
  Sender: FDA-Public Use
  Company Number: A0668151A

PATIENT
  Age: 56 Year
  Sex: Female

DRUGS (4)
  1. TYKERB [Suspect]
     Indication: BREAST CANCER
     Dosage: 1250MG PER DAY
     Route: 048
     Dates: start: 20070501
  2. XELODA [Suspect]
     Indication: BREAST CANCER
     Route: 065
  3. PROZAC [Concomitant]
  4. IMODIUM [Concomitant]

REACTIONS (8)
  - ANOREXIA [None]
  - DIARRHOEA [None]
  - HYPERHIDROSIS [None]
  - NAUSEA [None]
  - OCULAR ICTERUS [None]
  - VERTIGO [None]
  - VOMITING [None]
  - WEIGHT DECREASED [None]
